FAERS Safety Report 6213337-0 (Version None)
Quarter: 2009Q2

REPORT INFORMATION
  Report Type: 
  Country: None (occurrence: None)
  Receive Date: 20090603
  Receipt Date: 20090526
  Transmission Date: 20091009
  Serious: Yes (Hospitalization)
  Sender: FDA-Public Use
  Company Number: US-JNJFOC-20090506190

PATIENT
  Sex: Female
  Weight: 48.4 kg

DRUGS (4)
  1. REMICADE [Suspect]
     Route: 042
  2. REMICADE [Suspect]
     Indication: INFLAMMATORY BOWEL DISEASE
     Route: 042
  3. MERCAPTOPURINE [Concomitant]
  4. CIPRO [Concomitant]

REACTIONS (1)
  - CONSTIPATION [None]
